FAERS Safety Report 15256495 (Version 1)
Quarter: 2018Q3

REPORT INFORMATION
  Report Type: Spontaneous
  Country: US (occurrence: US)
  Receive Date: 20180718
  Receipt Date: 20180718
  Transmission Date: 20181010
  Serious: Yes (Hospitalization)
  Sender: FDA-Public Use
  Company Number: None

PATIENT
  Age: 77 Year
  Sex: Female

DRUGS (1)
  1. KISQALI [Suspect]
     Active Substance: RIBOCICLIB
     Indication: BREAST CANCER FEMALE
     Route: 048
     Dates: start: 20180609, end: 20180711

REACTIONS (5)
  - Drug dose omission [None]
  - Thrombosis [None]
  - Cerebrovascular accident [None]
  - Brain oedema [None]
  - Seizure [None]

NARRATIVE: CASE EVENT DATE: 20180711
